FAERS Safety Report 5165870-0 (Version None)
Quarter: 2007Q1

REPORT INFORMATION
  Report Type: 
  Country: None (occurrence: None)
  Receive Date: 20061128
  Receipt Date: 20061120
  Transmission Date: 20070707
  Serious: Yes (Other)
  Sender: FDA-Public Use
  Company Number: 163-21880-06110061

PATIENT
  Age: 52 Year
  Sex: Female

DRUGS (6)
  1. REVLIMID [Suspect]
     Indication: MULTIPLE MYELOMA
     Dosage: 10-25 MG, DAILY, ORAL
     Route: 048
     Dates: start: 20060607, end: 20061020
  2. DEXAMETHASONE TAB [Suspect]
     Indication: MULTIPLE MYELOMA
     Dates: start: 20060607, end: 20060101
  3. ARANESP [Concomitant]
  4. LASIX [Concomitant]
  5. ROXICET [Concomitant]
  6. ASA  (ACETYLSALICYCLIC ACID) [Concomitant]

REACTIONS (10)
  - AXILLARY VEIN THROMBOSIS [None]
  - COORDINATION ABNORMAL [None]
  - HAEMOPTYSIS [None]
  - HYPOTENSION [None]
  - JUGULAR VEIN THROMBOSIS [None]
  - LOCAL SWELLING [None]
  - PLEURITIC PAIN [None]
  - SENSORY DISTURBANCE [None]
  - SUBCLAVIAN VEIN THROMBOSIS [None]
  - VENA CAVA THROMBOSIS [None]
